FAERS Safety Report 9528369 (Version 1)
Quarter: 2013Q3

REPORT INFORMATION
  Report Type: Spontaneous
  Country: PT (occurrence: None)
  Receive Date: 20130913
  Receipt Date: 20130913
  Transmission Date: 20140515
  Serious: Yes (Life-Threatening)
  Sender: FDA-Public Use
  Company Number: INT_00297_2013

PATIENT
  Age: 64 Year
  Sex: Female

DRUGS (13)
  1. CEFAZOLINA [Suspect]
     Indication: INFECTION PROPHYLAXIS
     Dosage: 2 G, [TOTAL] INTRAVENOUS  (NOT OTHERWISE SPECIFIED)
     Dates: start: 20130117, end: 20130117
  2. BLUE PATENTE V [Suspect]
     Indication: DIAGNOSTIC PROCEDURE
     Dates: start: 20130117, end: 20130117
  3. BLUE PATENTE V [Suspect]
     Indication: LYMPHATIC MAPPING
     Dates: start: 20130117, end: 20130117
  4. MIDAZOLAM [Concomitant]
  5. MIOFLEX [Concomitant]
  6. FENTANYL [Concomitant]
  7. PROPOFOL FRESENIUS [Concomitant]
  8. ATRACURIUM [Concomitant]
  9. PARACETAMOL [Concomitant]
  10. AMIZAL [Concomitant]
  11. DORMONOCT [Concomitant]
  12. SIMVASTATIN [Concomitant]
  13. OMEPRAZOLE [Concomitant]

REACTIONS (2)
  - Anaphylactic shock [None]
  - Product quality issue [None]
